FAERS Safety Report 4443086-0 (Version None)
Quarter: 2004Q3

REPORT INFORMATION
  Report Type: 
  Country: None (occurrence: None)
  Receive Date: 20040908
  Receipt Date: 20040830
  Transmission Date: 20050211
  Serious: Yes (Life-Threatening, Hospitalization)
  Sender: FDA-Public Use
  Company Number: PL-JNJFOC-20040801217

PATIENT
  Sex: Female
  Weight: 79 kg

DRUGS (23)
  1. REMICADE [Suspect]
     Indication: RHEUMATOID ARTHRITIS
     Route: 042
  2. METHYLPREDNISOLONE [Concomitant]
     Indication: RHEUMATOID ARTHRITIS
     Route: 049
  3. CYCLOSPORINE [Concomitant]
     Indication: RHEUMATOID ARTHRITIS
     Route: 049
  4. CHLOROCHINE [Concomitant]
     Indication: RHEUMATOID ARTHRITIS
     Route: 049
  5. METHOTREXATE [Concomitant]
     Indication: RHEUMATOID ARTHRITIS
     Route: 049
  6. MEDROL [Concomitant]
  7. ELTROXIN [Concomitant]
  8. AMLOPIN [Concomitant]
  9. ENOXAPARIN SODIUM [Concomitant]
  10. CLEMASTINE [Concomitant]
  11. AMPICILLIN [Concomitant]
  12. AUGMENTIN [Concomitant]
  13. AUGMENTIN [Concomitant]
  14. KETONAL [Concomitant]
  15. PROXACIN [Concomitant]
  16. GENTAMYCIN SULFATE [Concomitant]
  17. KETONAL [Concomitant]
  18. TRILAC [Concomitant]
  19. TRILAC [Concomitant]
  20. TRILAC [Concomitant]
  21. SULFASALAZINE [Concomitant]
  22. LANZUL [Concomitant]
  23. HEMOFER [Concomitant]

REACTIONS (9)
  - ACUTE MYELOID LEUKAEMIA [None]
  - ANAEMIA [None]
  - CONDITION AGGRAVATED [None]
  - KNEE OPERATION [None]
  - LEUKOCYTOSIS [None]
  - POSTOPERATIVE INFECTION [None]
  - PYREXIA [None]
  - RHEUMATOID ARTHRITIS [None]
  - THROMBOCYTOPENIA [None]
